FAERS Safety Report 16770374 (Version 1)
Quarter: 2019Q3

REPORT INFORMATION
  Report Type: Spontaneous
  Country: BR (occurrence: BR)
  Receive Date: 20190904
  Receipt Date: 20190904
  Transmission Date: 20191005
  Serious: Yes (Other)
  Sender: FDA-Public Use
  Company Number: BR-SA-2019SA236048

PATIENT
  Sex: Female
  Weight: 66 kg

DRUGS (2)
  1. SYNTHROID [Concomitant]
     Active Substance: LEVOTHYROXINE SODIUM
     Indication: THYROID DISORDER
     Dosage: 1 DF, QD
     Route: 048
  2. ARAVA [Suspect]
     Active Substance: LEFLUNOMIDE
     Indication: PSORIASIS
     Dosage: 20 MG, QD
     Route: 048
     Dates: start: 201905

REACTIONS (6)
  - Erythema [Recovered/Resolved]
  - Burning sensation [Recovering/Resolving]
  - Unevaluable event [Unknown]
  - Skin irritation [Recovered/Resolved]
  - Condition aggravated [Recovering/Resolving]
  - Skin erosion [Not Recovered/Not Resolved]
